FAERS Safety Report 5743588-0 (Version None)
Quarter: 2008Q2

REPORT INFORMATION
  Report Type: 
  Country: None (occurrence: None)
  Receive Date: 20080520
  Receipt Date: 20080513
  Transmission Date: 20081010
  Serious: Yes (Disabling, Congenital Anomaly)
  Sender: FDA-Public Use
  Company Number: PHHY2008JP07912

PATIENT
  Age: -158 Day
  Sex: Female
  Weight: 3.09 kg

DRUGS (1)
  1. LAMISIL [Suspect]
     Dosage: MATERNAL DOSE: 125MG DAILY
     Route: 064

REACTIONS (2)
  - CONGENITAL ANOMALY [None]
  - DRUG EXPOSURE DURING PREGNANCY [None]
